FAERS Safety Report 7990039-1 (Version None)
Quarter: 2011Q4

REPORT INFORMATION
  Report Type: 
  Country: None (occurrence: None)
  Receive Date: 20111219
  Receipt Date: 20110103
  Transmission Date: 20120403
  Serious: No
  Sender: FDA-Public Use
  Company Number: US-ASTRAZENECA-2011SE00182

PATIENT
  Age: 60 Year
  Sex: Female
  Weight: 104.3 kg

DRUGS (2)
  1. CRESTOR [Suspect]
     Indication: HYPERCHOLESTEROLAEMIA
     Route: 048
     Dates: start: 20050101
  2. CRESTOR [Suspect]
     Route: 048
     Dates: start: 20100101, end: 20100701

REACTIONS (3)
  - DRUG DOSE OMISSION [None]
  - HYPERTENSION [None]
  - INCORRECT DOSE ADMINISTERED [None]
